FAERS Safety Report 7315474-6 (Version None)
Quarter: 2011Q1

REPORT INFORMATION
  Report Type: 
  Country: None (occurrence: None)
  Receive Date: 20110225
  Receipt Date: 20110222
  Transmission Date: 20110831
  Serious: Yes (Other)
  Sender: FDA-Public Use
  Company Number: US-PFIZER INC-2011038748

PATIENT
  Sex: Female

DRUGS (2)
  1. ADVIL [Suspect]
     Indication: PAIN IN EXTREMITY
  2. ADVIL [Suspect]
     Indication: BACK PAIN
     Dosage: UNK
     Dates: start: 20110217

REACTIONS (3)
  - DIARRHOEA [None]
  - RECTAL HAEMORRHAGE [None]
  - DRUG INEFFECTIVE [None]
